FAERS Safety Report 17405676 (Version 1)
Quarter: 2020Q1

REPORT INFORMATION
  Report Type: Spontaneous
  Country: US (occurrence: US)
  Receive Date: 20200127
  Receipt Date: 20200127
  Transmission Date: 20200409
  Serious: Yes (Hospitalization)
  Sender: FDA-Public Use
  Company Number: None

PATIENT
  Age: 57 Year
  Sex: Male

DRUGS (23)
  1. COLCHICINE. [Concomitant]
     Active Substance: COLCHICINE
  2. SILDENAFIL 20MG [Suspect]
     Active Substance: SILDENAFIL
     Indication: CARDIAC DISORDER
     Route: 048
     Dates: start: 20190724
  3. FEXOFEN/PSE TAB [Concomitant]
  4. ALLOPURINOL TAB [Concomitant]
     Active Substance: ALLOPURINOL
  5. SILDENAFIL 20MG [Suspect]
     Active Substance: SILDENAFIL
     Indication: PULMONARY ARTERIAL HYPERTENSION
     Route: 048
     Dates: start: 20190724
  6. COQ10 [Concomitant]
     Active Substance: UBIDECARENONE
  7. FLAXSEED [Concomitant]
     Active Substance: FLAX SEED
  8. WARFIN [Concomitant]
     Active Substance: WARFARIN
  9. MAGNESIUM TAB [Concomitant]
  10. AMANTADINE. [Concomitant]
     Active Substance: AMANTADINE HYDROCHLORIDE
  11. ZYRTEC ALLGY [Concomitant]
  12. FISH OIL [Concomitant]
     Active Substance: FISH OIL
  13. VITAMIN E [Concomitant]
     Active Substance: .ALPHA.-TOCOPHEROL
  14. VITAMIN B COMPLEX [Concomitant]
     Active Substance: CYANOCOBALAMIN\DEXPANTHENOL\NIACINAMIDE\PYRIDOXINE HYDROCHLORIDE\RIBOFLAVIN 5^-PHOSPHATE SODIUM\THIAMINE HYDROCHLORIDE\VITAMIN B COMPLEX
  15. METOLAZONE. [Concomitant]
     Active Substance: METOLAZONE
  16. VICTOZA INJ [Concomitant]
  17. TRESIBA [Concomitant]
     Active Substance: INSULIN DEGLUDEC
  18. PLAVIX TAB [Concomitant]
  19. BUMETANIDE. [Concomitant]
     Active Substance: BUMETANIDE
  20. GLIMEPIRIDE. [Concomitant]
     Active Substance: GLIMEPIRIDE
  21. ATORVASTATIN TAB [Concomitant]
     Active Substance: ATORVASTATIN
  22. AMIODARONE [Concomitant]
     Active Substance: AMIODARONE
  23. POT CHLORIDE [Concomitant]
     Active Substance: POTASSIUM CHLORIDE

REACTIONS (1)
  - Pulmonary valve replacement [None]

NARRATIVE: CASE EVENT DATE: 20200110
